FAERS Safety Report 4277901-0 (Version None)
Quarter: 2004Q1

REPORT INFORMATION
  Report Type: 
  Country: None (occurrence: None)
  Receive Date: 20040121
  Receipt Date: 20030505
  Transmission Date: 20041129
  Serious: Yes (Hospitalization, Other)
  Sender: FDA-Public Use
  Company Number: 2003-05-0081

PATIENT
  Age: 24 Year
  Sex: Male

DRUGS (4)
  1. SUBUTEX [Suspect]
     Indication: DRUG DEPENDENCE
     Route: 013
  2. TERCIAN TABLETS [Concomitant]
  3. TRANXENE [Concomitant]
  4. ANAFRANIL TABLETS [Concomitant]

REACTIONS (6)
  - ARTERIAL THROMBOSIS LIMB [None]
  - EXTREMITY NECROSIS [None]
  - FINGER AMPUTATION [None]
  - MEDICATION ERROR [None]
  - PARAESTHESIA [None]
  - PERIPHERAL ISCHAEMIA [None]
